FAERS Safety Report 6425095-5 (Version None)
Quarter: 2009Q4

REPORT INFORMATION
  Report Type: 
  Country: None (occurrence: None)
  Receive Date: 20091103
  Receipt Date: 20091022
  Transmission Date: 20100525
  Serious: Yes (Hospitalization)
  Sender: FDA-Public Use
  Company Number: US-PFIZER INC-2008042767

PATIENT
  Sex: Female
  Weight: 67 kg

DRUGS (9)
  1. SUNITINIB MALATE [Suspect]
     Indication: BREAST CANCER METASTATIC
     Dosage: 37.5 MG, 1X/DAY
     Route: 048
     Dates: start: 20080404
  2. LOTREL [Concomitant]
     Route: 048
     Dates: start: 20051115
  3. SERTRALINE HCL [Concomitant]
     Route: 048
     Dates: start: 20080219
  4. ACETYLSALICYLIC ACID [Concomitant]
     Route: 048
     Dates: start: 20070816
  5. DARVOCET-N 100 [Concomitant]
     Route: 048
     Dates: start: 20050427
  6. COMPAZINE [Concomitant]
     Route: 048
     Dates: start: 20080417
  7. POTASSIUM CHLORIDE [Concomitant]
     Route: 048
     Dates: start: 20080501
  8. LOMOTIL [Concomitant]
     Route: 048
     Dates: start: 20080424
  9. REQUIP [Concomitant]
     Route: 048
     Dates: start: 20080423, end: 20080514

REACTIONS (7)
  - CHILLS [None]
  - DECREASED APPETITE [None]
  - DEHYDRATION [None]
  - FAILURE TO THRIVE [None]
  - NAUSEA [None]
  - VOMITING [None]
  - WEIGHT DECREASED [None]
